FAERS Safety Report 6766255-3 (Version None)
Quarter: 2010Q2

REPORT INFORMATION
  Report Type: 
  Country: None (occurrence: None)
  Receive Date: 20100611
  Receipt Date: 20100602
  Transmission Date: 20101027
  Serious: Yes (Death, Other)
  Sender: FDA-Public Use
  Company Number: IE-ABBOTT-10P-229-0622549-00

PATIENT
  Age: 53 Year
  Sex: Male
  Weight: 88.984 kg

DRUGS (1)
  1. REDUCTIL [Suspect]
     Indication: WEIGHT CONTROL
     Route: 048
     Dates: start: 20070101

REACTIONS (3)
  - ANXIETY [None]
  - DISCOMFORT [None]
  - STRESS [None]
